FAERS Safety Report 6236641-9 (Version None)
Quarter: 2009Q2

REPORT INFORMATION
  Report Type: 
  Country: None (occurrence: None)
  Receive Date: 20090619
  Receipt Date: 20081017
  Transmission Date: 20091009
  Serious: No
  Sender: FDA-Public Use
  Company Number: US-ASTRAZENECA-2008UW23135

PATIENT
  Age: 87 Year
  Sex: Female
  Weight: 81.2 kg

DRUGS (5)
  1. ATACAND [Suspect]
     Route: 048
     Dates: start: 20081002
  2. LEVOXYL [Concomitant]
  3. TAMOXIFEN CITRATE [Concomitant]
  4. PRILOSEC [Concomitant]
  5. LORAZEPAM [Concomitant]

REACTIONS (3)
  - ABDOMINAL DISCOMFORT [None]
  - DIARRHOEA [None]
  - STOMATITIS [None]
